FAERS Safety Report 8587802-5 (Version None)
Quarter: 2012Q3

REPORT INFORMATION
  Report Type: 
  Country: None (occurrence: None)
  Receive Date: 20120813
  Receipt Date: 20120802
  Transmission Date: 20120928
  Serious: Yes (Hospitalization, Other)
  Sender: FDA-Public Use
  Company Number: US-BIOGENIDEC-2005BI008835

PATIENT
  Sex: Female
  Weight: 83 kg

DRUGS (3)
  1. PREVACID [Concomitant]
     Indication: DYSPEPSIA
     Dates: start: 20010101
  2. FERROUS SULFATE TAB [Concomitant]
     Indication: IRON DEFICIENCY ANAEMIA
     Dates: start: 20041101
  3. AVONEX [Suspect]
     Indication: MULTIPLE SCLEROSIS
     Route: 030
     Dates: start: 20050319

REACTIONS (14)
  - ASTHENIA [None]
  - HAEMATOCHEZIA [None]
  - SPEECH DISORDER [None]
  - MUSCLE SPASMS [None]
  - INFLUENZA LIKE ILLNESS [None]
  - MULTIPLE SCLEROSIS RELAPSE [None]
  - THROMBOSIS [None]
  - GASTRITIS [None]
  - THYROID CANCER [None]
  - TRANSFUSION [None]
  - FAECAL INCONTINENCE [None]
  - PULMONARY THROMBOSIS [None]
  - GASTRIC HAEMORRHAGE [None]
  - BLINDNESS [None]
